FAERS Safety Report 12233394 (Version 1)
Quarter: 2016Q2

REPORT INFORMATION
  Report Type: Report from Study
  Country: GB (occurrence: GB)
  Receive Date: 20160404
  Receipt Date: 20160404
  Transmission Date: 20160815
  Serious: Yes (Hospitalization)
  Sender: FDA-Public Use
  Company Number: GB-ACCORD-039200

PATIENT
  Age: 61 Year
  Sex: Female
  Weight: 88 kg

DRUGS (4)
  1. PERTUZUMAB [Suspect]
     Active Substance: PERTUZUMAB
     Indication: BREAST CANCER
     Dosage: RECEIVED LOADING DOSE 840 MG ON 15-MAY-2012 AND MAINTENANCE DOSE 420 MG EVERY 21 DAYS.
     Route: 042
     Dates: start: 20120515, end: 20120724
  2. PACLITAXEL/PACLITAXEL LIPOSOME [Suspect]
     Active Substance: PACLITAXEL
     Indication: BREAST CANCER
     Dosage: ALSO RECEIVED 90 MG/M2 ONCE A WEEK ON AN UNKNOWN DATE
     Route: 042
     Dates: start: 20120516, end: 20120724
  3. HERCEPTIN [Suspect]
     Active Substance: TRASTUZUMAB
     Indication: BREAST CANCER
     Dosage: RECEIVED LOADING DOSE 8 MG/KG ON 15-MAY-2012 AND MAINTENANCE DOSE 441 MG EVERY 21 DAYS.
     Route: 042
     Dates: start: 20120515, end: 20120724
  4. PARACETAMOL [Concomitant]
     Active Substance: ACETAMINOPHEN
     Route: 065
     Dates: start: 20120614

REACTIONS (2)
  - Pneumonitis [Recovered/Resolved]
  - Stomatitis [Unknown]

NARRATIVE: CASE EVENT DATE: 20120711
